FAERS Safety Report 4436239-9 (Version None)
Quarter: 2004Q3

REPORT INFORMATION
  Report Type: 
  Country: None (occurrence: None)
  Receive Date: 20040830
  Receipt Date: 20040607
  Transmission Date: 20050211
  Serious: No
  Sender: FDA-Public Use
  Company Number: US-BRISTOL-MYERS SQUIBB COMPANY-12607453

PATIENT
  Age: 75 Year
  Sex: Female
  Weight: 50 kg

DRUGS (16)
  1. ERBITUX [Suspect]
     Indication: COLON CANCER METASTATIC
     Dosage: LOAD DOSE (400MG/M2) 28-APR-04, 250 MG/M2 X 5 DOSES - 06-MAY, 12-MAY, 18-MAY, 24-MAY AND 01-JUN-04.
     Route: 042
     Dates: start: 20040524, end: 20040524
  2. ZOFRAN [Concomitant]
     Indication: PREMEDICATION
     Dates: start: 20040524, end: 20040524
  3. BENADRYL [Concomitant]
     Indication: PREMEDICATION
     Dates: start: 20040524, end: 20040524
  4. TYLENOL [Concomitant]
     Indication: PREMEDICATION
     Dates: start: 20040524, end: 20040524
  5. ZOMETA [Concomitant]
  6. PERCOCET [Concomitant]
  7. LEVOTHYROXIN [Concomitant]
  8. LIPITOR [Concomitant]
  9. EVISTA [Concomitant]
  10. CALCIUM [Concomitant]
  11. VITAMIN CAP [Concomitant]
  12. SENOKOT [Concomitant]
  13. PREVACID [Concomitant]
  14. VIOXX [Concomitant]
  15. COMPAZINE [Concomitant]
  16. CHONDROITIN + GLUCOSAMINE [Concomitant]

REACTIONS (3)
  - EYE IRRITATION [None]
  - MUSCLE CRAMP [None]
  - SKIN FISSURES [None]
